FAERS Safety Report 14973715 (Version 3)
Quarter: 2018Q3

REPORT INFORMATION
  Report Type: Spontaneous
  Country: AR (occurrence: AR)
  Receive Date: 20180605
  Receipt Date: 20180906
  Transmission Date: 20181010
  Serious: Yes (Other)
  Sender: FDA-Public Use
  Company Number: AR-PFIZER INC-2018224269

PATIENT
  Age: 55 Year
  Sex: Female

DRUGS (1)
  1. XELJANZ [Suspect]
     Active Substance: TOFACITINIB CITRATE
     Indication: RHEUMATOID ARTHRITIS
     Dosage: 5 MG, 2X/DAY
     Dates: start: 20170526, end: 20180516

REACTIONS (5)
  - Gastric disorder [Unknown]
  - Drug ineffective [Unknown]
  - Lower limb fracture [Not Recovered/Not Resolved]
  - Intentional dose omission [Unknown]
  - Accident [Recovering/Resolving]

NARRATIVE: CASE EVENT DATE: 20180505
